FAERS Safety Report 9648666 (Version 1)
Quarter: 2013Q4

REPORT INFORMATION
  Report Type: Spontaneous
  Country: US (occurrence: US)
  Receive Date: 20131028
  Receipt Date: 20131028
  Transmission Date: 20140711
  Serious: Yes (Other)
  Sender: FDA-Public Use
  Company Number: US-BAUSCH-BL-2013-004503

PATIENT
  Age: 14 Year
  Sex: Male
  Weight: 59.02 kg

DRUGS (2)
  1. PROPARACAINE HYDROCHLORIDE OPHTHALMIC SOLUTION USP 0.5% [Suspect]
     Indication: HYPOAESTHESIA EYE
     Dosage: OPHTHALMIC; ONE TIME
     Route: 047
     Dates: start: 20130731, end: 20130731
  2. TROPICAMIDE OPHTHALMIC SOLUTION USP 1% [Suspect]
     Indication: MYDRIASIS
     Dosage: OPHTHALMIC; ONE TIME
     Route: 047
     Dates: start: 20130731, end: 20130731

REACTIONS (5)
  - Shock [Recovered/Resolved]
  - Convulsion [Recovered/Resolved]
  - Chills [Recovered/Resolved]
  - Syncope [Recovered/Resolved]
  - Dysphonia [Recovered/Resolved]
